FAERS Safety Report 6177806-4 (Version None)
Quarter: 2009Q2

REPORT INFORMATION
  Report Type: 
  Country: None (occurrence: None)
  Receive Date: 20090501
  Receipt Date: 20090501
  Transmission Date: 20091009
  Serious: Yes (Hospitalization)
  Sender: FDA-Public Use
  Company Number: None

PATIENT
  Age: 56 Year
  Sex: Male

DRUGS (2)
  1. ABCIXIMAB [Suspect]
     Indication: CARDIOVASCULAR DISORDER
     Dates: start: 20090213, end: 20090213
  2. ABCIXIMAB [Suspect]
     Indication: SURGERY
     Dates: start: 20090213, end: 20090213

REACTIONS (1)
  - THROMBOCYTOPENIA [None]
